FAERS Safety Report 7227599-4 (Version None)
Quarter: 2011Q1

REPORT INFORMATION
  Report Type: 
  Country: None (occurrence: None)
  Receive Date: 20110114
  Receipt Date: 20110104
  Transmission Date: 20110831
  Serious: No
  Sender: FDA-Public Use
  Company Number: US-ELI_LILLY_AND_COMPANY-US201011000069

PATIENT
  Sex: Female

DRUGS (3)
  1. FORTEO [Suspect]
     Indication: OSTEOPOROSIS
     Dosage: 20 UG, DAILY (1/D)
     Route: 065
     Dates: start: 20100701
  2. ANTIHYPERTENSIVES [Concomitant]
  3. MULTIVITAMIN [Concomitant]

REACTIONS (5)
  - DIZZINESS [None]
  - DECREASED APPETITE [None]
  - PAIN [None]
  - VISION BLURRED [None]
  - CONSTIPATION [None]
